FAERS Safety Report 13842146 (Version 1)
Quarter: 2017Q3

REPORT INFORMATION
  Report Type: Report from Study
  Country: US (occurrence: US)
  Receive Date: 20170807
  Receipt Date: 20170807
  Transmission Date: 20171127
  Serious: Yes (Hospitalization, Other)
  Sender: FDA-Public Use
  Company Number: US-GILEAD-2017-0286636

PATIENT
  Age: 39 Year
  Sex: Male

DRUGS (1)
  1. LEDIPASVIR/SOFOSBUVIR [Suspect]
     Active Substance: LEDIPASVIR\SOFOSBUVIR
     Indication: CHRONIC HEPATITIS C
     Dosage: 1 DF, UNK
     Route: 048
     Dates: end: 20170730

REACTIONS (4)
  - Intentional dose omission [Recovered/Resolved]
  - Procedural vomiting [Unknown]
  - Radiotherapy [Unknown]
  - Weight decreased [Unknown]

NARRATIVE: CASE EVENT DATE: 20170714
